FAERS Safety Report 23064279 (Version 1)
Quarter: 2023Q4

REPORT INFORMATION
  Report Type: Spontaneous
  Country: US (occurrence: None)
  Receive Date: 20231013
  Receipt Date: 20231013
  Transmission Date: 20240110
  Serious: Yes (Life-Threatening, Hospitalization)
  Sender: FDA-Public Use
  Company Number: None

PATIENT
  Age: 78 Year
  Sex: Male

DRUGS (1)
  1. CARVEDILOL [Suspect]
     Active Substance: CARVEDILOL
     Dosage: FREQUENCY : TWICE A DAY;?
     Route: 048
     Dates: start: 20221104, end: 20221115

REACTIONS (3)
  - Dizziness [None]
  - Vertigo [None]
  - Bradycardia [None]

NARRATIVE: CASE EVENT DATE: 20221112
